FAERS Safety Report 25606363 (Version 1)
Quarter: 2025Q3

REPORT INFORMATION
  Report Type: Spontaneous
  Country: US (occurrence: US)
  Receive Date: 20250725
  Receipt Date: 20250725
  Transmission Date: 20251021
  Serious: Yes (Other)
  Sender: EDGEWELL PERSONAL CARE BRANDS
  Company Number: US-Edgewell Personal Care, LLC-2181198

PATIENT
  Age: 36 Year
  Sex: Male

DRUGS (1)
  1. HAWAIIAN TROPIC EVERYDAY ACTIVE SPF50 [Suspect]
     Active Substance: AVOBENZONE\HOMOSALATE\OCTISALATE\OCTOCRYLENE
     Indication: Prophylaxis against solar radiation

REACTIONS (1)
  - Accident [Recovered/Resolved]

NARRATIVE: CASE EVENT DATE: 20250703
